FAERS Safety Report 9260346 (Version 2)
Quarter: 2013Q4

REPORT INFORMATION
  Report Type: Spontaneous
  Country: HN (occurrence: HN)
  Receive Date: 20130429
  Receipt Date: 20131001
  Transmission Date: 20140711
  Serious: Yes (Other)
  Sender: FDA-Public Use
  Company Number: PHHY2013HN041827

PATIENT
  Age: 86 Year
  Sex: Female

DRUGS (3)
  1. EXELON PATCH [Suspect]
     Dosage: 4.6 MG DAILY
     Route: 062
  2. EXELON PATCH [Suspect]
     Dosage: 9.5 MG DAILY
     Route: 062
  3. EXELON PATCH [Suspect]
     Dosage: 4.6 MG DAILY
     Route: 062

REACTIONS (1)
  - Psychotic disorder [Recovering/Resolving]
